FAERS Safety Report 24042232 (Version 1)
Quarter: 2024Q3

REPORT INFORMATION
  Report Type: Report from Study
  Country: US (occurrence: None)
  Receive Date: 20240702
  Receipt Date: 20240702
  Transmission Date: 20241017
  Serious: Yes (Other)
  Sender: ASTRAZENECA
  Company Number: 2024A146086

PATIENT
  Sex: Female
  Weight: 45.4 kg

DRUGS (1)
  1. TRUQAP [Suspect]
     Active Substance: CAPIVASERTIB
     Indication: Breast cancer female
     Dosage: 400MG TWICE DAILY (MON-THURS, NO MEDICATION TAKEN FRI-SUN)
     Route: 048
     Dates: start: 20240422

REACTIONS (3)
  - Hepatic lesion [Unknown]
  - Bone lesion [Unknown]
  - Alanine aminotransferase increased [Unknown]
